FAERS Safety Report 5372131-3 (Version None)
Quarter: 2007Q2

REPORT INFORMATION
  Report Type: 
  Country: None (occurrence: None)
  Receive Date: 20070615
  Receipt Date: 20070226
  Transmission Date: 20071010
  Serious: No
  Sender: FDA-Public Use
  Company Number: SP01144

PATIENT
  Age: 56 Year
  Sex: Male

DRUGS (2)
  1. XIFAXAN [Suspect]
     Indication: BACTERIAL INFECTION
     Dosage: ORAL
     Route: 048
  2. ZELNORM [Suspect]

REACTIONS (2)
  - ABDOMINAL PAIN [None]
  - DRUG INEFFECTIVE [None]
